FAERS Safety Report 8506514-7 (Version None)
Quarter: 2012Q3

REPORT INFORMATION
  Report Type: 
  Country: None (occurrence: None)
  Receive Date: 20120712
  Receipt Date: 20120320
  Transmission Date: 20120928
  Serious: No
  Sender: FDA-Public Use
  Company Number: US-GLAXOSMITHKLINE-A0957121A

PATIENT
  Age: 82 Year
  Sex: Male

DRUGS (7)
  1. JALYN [Suspect]
     Indication: BENIGN PROSTATIC HYPERPLASIA
     Dosage: 1CAP PER DAY
     Route: 048
     Dates: start: 20111025
  2. LIPITOR [Concomitant]
  3. PROPRANOLOL [Concomitant]
  4. FINASTERIDE [Concomitant]
  5. ENALAPRIL MALEATE [Concomitant]
  6. ADVAIR DISKUS 100/50 [Concomitant]
  7. OXYCODONE/ACETAMINOPHEN [Concomitant]

REACTIONS (2)
  - OEDEMA PERIPHERAL [None]
  - OVERDOSE [None]
